FAERS Safety Report 4456288-4 (Version None)
Quarter: 2004Q3

REPORT INFORMATION
  Report Type: 
  Country: None (occurrence: None)
  Receive Date: 20040922
  Receipt Date: 20040915
  Transmission Date: 20050211
  Serious: Yes (Hospitalization, Disabling)
  Sender: FDA-Public Use
  Company Number: US-MERCK-0409USA01378

PATIENT
  Age: 64 Year
  Sex: Male

DRUGS (3)
  1. ATENOLOL [Concomitant]
     Route: 065
  2. ANAPRIL [Concomitant]
     Route: 065
  3. ZOCOR [Suspect]
     Indication: BLOOD CHOLESTEROL INCREASED
     Route: 048
     Dates: start: 19960101

REACTIONS (2)
  - DIFFICULTY IN WALKING [None]
  - PAIN IN EXTREMITY [None]
